FAERS Safety Report 5221427-4 (Version None)
Quarter: 2007Q1

REPORT INFORMATION
  Report Type: 
  Country: None (occurrence: None)
  Receive Date: 20070126
  Receipt Date: 20070118
  Transmission Date: 20070707
  Serious: Yes (Hospitalization)
  Sender: FDA-Public Use
  Company Number: US-PFIZER INC-2007004781

PATIENT
  Sex: Male

DRUGS (9)
  1. ZOLOFT [Suspect]
     Indication: DEPRESSION
     Dosage: TEXT:UNKNOWN
     Dates: start: 20061208, end: 20070107
  2. ZOLOFT [Suspect]
     Indication: INSOMNIA
  3. ATRIPLA [Suspect]
     Indication: HIV INFECTION
     Dosage: TEXT:UNKNOWN
     Route: 048
  4. PROTONIX [Concomitant]
     Indication: DYSPEPSIA
  5. ASCORBIC ACID [Concomitant]
     Indication: NUTRITIONAL SUPPORT
  6. VITAMIN E [Concomitant]
     Indication: NUTRITIONAL SUPPORT
  7. VITAMIN B COMPLEX CAP [Concomitant]
     Indication: NUTRITIONAL SUPPORT
  8. LOMOTIL [Concomitant]
     Indication: DIARRHOEA
  9. LOMOTIL [Concomitant]
     Dates: start: 20031212, end: 20031221

REACTIONS (1)
  - TACHYARRHYTHMIA [None]
